FAERS Safety Report 5466847-8 (Version None)
Quarter: 2007Q3

REPORT INFORMATION
  Report Type: 
  Country: None (occurrence: None)
  Receive Date: 20070925
  Receipt Date: 20070924
  Transmission Date: 20080115
  Serious: Yes (Other)
  Sender: FDA-Public Use
  Company Number: US-BRISTOL-MYERS SQUIBB COMPANY-13913645

PATIENT
  Age: 71 Year
  Sex: Female

DRUGS (9)
  1. TEQUIN [Suspect]
     Indication: DIVERTICULITIS
  2. TENORMIN [Concomitant]
  3. NEURONTIN [Concomitant]
  4. ASPIRIN [Concomitant]
  5. SYNTHROID [Concomitant]
  6. WELCHOL [Concomitant]
  7. TOPAMAX [Concomitant]
  8. AMARYL [Concomitant]
  9. ACIPHEX [Concomitant]

REACTIONS (1)
  - HYPOGLYCAEMIA [None]
